FAERS Safety Report 8384859-1 (Version None)
Quarter: 2012Q2

REPORT INFORMATION
  Report Type: 
  Country: None (occurrence: None)
  Receive Date: 20120524
  Receipt Date: 20120518
  Transmission Date: 20120825
  Serious: Yes (Other)
  Sender: FDA-Public Use
  Company Number: US-PFIZER INC-2012082932

PATIENT
  Sex: Female
  Weight: 98.4 kg

DRUGS (4)
  1. ESTRADIOL [Concomitant]
     Dosage: UNK
     Dates: end: 20111101
  2. CELEBREX [Suspect]
     Indication: MYALGIA
     Dosage: 200 MG, 2X/DAY
     Route: 048
     Dates: start: 20101001, end: 20111101
  3. LISINOPRIL [Concomitant]
     Indication: HYPERTENSION
     Dosage: UNK
  4. TRAMADOL [Concomitant]
     Indication: PAIN
     Dosage: UNK

REACTIONS (7)
  - FALL [None]
  - LIMB INJURY [None]
  - FRACTURE [None]
  - THROMBOSIS [None]
  - ANKLE OPERATION [None]
  - ANKLE FRACTURE [None]
  - TENDON INJURY [None]
